FAERS Safety Report 18248840 (Version 4)
Quarter: 2021Q4

REPORT INFORMATION
  Report Type: Spontaneous
  Country: CA (occurrence: CA)
  Receive Date: 20200909
  Receipt Date: 20211005
  Transmission Date: 20220303
  Serious: Yes (Hospitalization, Other)
  Sender: FDA-Public Use
  Company Number: CA-SAMSUNG BIOEPIS-SB-2020-27733

PATIENT
  Age: 64 Year
  Sex: Female

DRUGS (13)
  1. INFLIXIMAB [Suspect]
     Active Substance: INFLIXIMAB
     Indication: Crohn^s disease
     Route: 042
  2. INFLIXIMAB [Suspect]
     Active Substance: INFLIXIMAB
     Route: 042
  3. AMITRIPTYLINE HYDROCHLORIDE [Concomitant]
     Active Substance: AMITRIPTYLINE HYDROCHLORIDE
     Indication: Product used for unknown indication
     Route: 048
  4. AMITRIPTYLINE HYDROCHLORIDE [Concomitant]
     Active Substance: AMITRIPTYLINE HYDROCHLORIDE
     Route: 048
  5. FOLIC ACID [Concomitant]
     Active Substance: FOLIC ACID
     Indication: Product used for unknown indication
     Route: 048
  6. IRON [Concomitant]
     Active Substance: IRON
     Indication: Blood iron decreased
     Dosage: UNKNOWN
     Route: 042
  7. METHOTREXATE [Concomitant]
     Active Substance: METHOTREXATE
     Indication: Product used for unknown indication
     Route: 048
  8. NITROFURANTOIN [Concomitant]
     Active Substance: NITROFURANTOIN
     Indication: Cystitis
     Route: 065
  9. RABEPRAZOLE SODIUM [Concomitant]
     Active Substance: RABEPRAZOLE SODIUM
     Indication: Product used for unknown indication
     Route: 048
  10. RABEPRAZOLE SODIUM [Concomitant]
     Active Substance: RABEPRAZOLE SODIUM
     Dosage: TABLET (ENTERIC COATED)
     Route: 048
  11. ROBAXIN [Concomitant]
     Active Substance: METHOCARBAMOL
     Indication: Product used for unknown indication
     Route: 048
  12. ROBAXIN [Concomitant]
     Active Substance: METHOCARBAMOL
     Route: 048
  13. VENLAFAXINE HYDROCHLORIDE [Concomitant]
     Active Substance: VENLAFAXINE HYDROCHLORIDE
     Indication: Product used for unknown indication
     Route: 048

REACTIONS (12)
  - Blood pressure fluctuation [Unknown]
  - Condition aggravated [Recovered/Resolved]
  - Cystitis [Unknown]
  - Respiratory rate decreased [Unknown]
  - Small intestinal obstruction [Unknown]
  - Disease recurrence [Unknown]
  - Insomnia [Unknown]
  - Malaise [Unknown]
  - Poor venous access [Unknown]
  - Inappropriate schedule of product administration [Unknown]
  - Intentional product use issue [Unknown]
  - Off label use [Unknown]
